FAERS Safety Report 4889115-1 (Version None)
Quarter: 2005Q4

REPORT INFORMATION
  Report Type: 
  Country: None (occurrence: None)
  Receive Date: 20051215
  Receipt Date: 20050317
  Transmission Date: 20060501
  Serious: Yes (Other)
  Sender: FDA-Public Use
  Company Number: 2004090246

PATIENT
  Sex: Female

DRUGS (6)
  1. BEXTRA [Suspect]
     Indication: ILL-DEFINED DISORDER
     Dosage: 20 MG (20 MG, 1 IN 1 D)
  2. BUDESONIDE [Concomitant]
  3. ALENDRONATE SODIUM [Concomitant]
  4. PRINZIDE [Concomitant]
  5. SIMVASTATIN [Concomitant]
  6. SERETIDE MITE (FLUTICASONE PROPIONATE, SALMETEROL XINAFOATE) [Concomitant]

REACTIONS (2)
  - BLOOD BLISTER [None]
  - DEEP VEIN THROMBOSIS [None]
